FAERS Safety Report 4698926-7 (Version None)
Quarter: 2005Q2

REPORT INFORMATION
  Report Type: 
  Country: None (occurrence: None)
  Receive Date: 20050624
  Receipt Date: 20050615
  Transmission Date: 20051028
  Serious: Yes (Life-Threatening, Other)
  Sender: FDA-Public Use
  Company Number: US-JNJFOC-20050500566

PATIENT
  Sex: Female
  Weight: 72.58 kg

DRUGS (4)
  1. REMICADE [Suspect]
     Dosage: TWO INFUSIONS 8-10 YEARS AGO.
     Route: 042
  2. REMICADE [Suspect]
     Route: 042
  3. REMICADE [Suspect]
     Indication: CROHN'S DISEASE
     Route: 042
  4. COUMADIN [Concomitant]

REACTIONS (6)
  - ANAPHYLACTIC SHOCK [None]
  - BREAST CANCER [None]
  - DEEP VEIN THROMBOSIS [None]
  - INFUSION RELATED REACTION [None]
  - PULMONARY EMBOLISM [None]
  - URTICARIA [None]
